FAERS Safety Report 15264384 (Version 1)
Quarter: 2018Q3

REPORT INFORMATION
  Report Type: Spontaneous
  Country: US (occurrence: US)
  Receive Date: 20180722
  Receipt Date: 20180722
  Transmission Date: 20181010
  Serious: No
  Sender: FDA-Public Use
  Company Number: None

PATIENT
  Age: 50 Year
  Sex: Male
  Weight: 105.75 kg

DRUGS (1)
  1. AMOXICILLIN 500MG CAPSULES [Suspect]
     Active Substance: AMOXICILLIN
     Indication: TOOTH ABSCESS
     Dosage: ?          QUANTITY:28 CAPSULE(S);?
     Route: 048
     Dates: start: 20180714, end: 20180721

REACTIONS (2)
  - Condition aggravated [None]
  - Dyshidrotic eczema [None]

NARRATIVE: CASE EVENT DATE: 20180715
